FAERS Safety Report 26199242 (Version 1)
Quarter: 2025Q4

REPORT INFORMATION
  Report Type: Spontaneous
  Country: EU (occurrence: EU)
  Receive Date: 20251225
  Receipt Date: 20251225
  Transmission Date: 20260119
  Serious: Yes (Hospitalization)
  Sender: AUROBINDO
  Company Number: EU-MLMSERVICE-20231108-4648747-1

PATIENT
  Age: 4 Decade

DRUGS (9)
  1. OXYCODONE [Suspect]
     Active Substance: OXYCODONE
     Indication: Back pain
     Dosage: 10 MILLIGRAM, ONCE A DAY
     Route: 065
     Dates: start: 202210, end: 2022
  2. OXYCODONE [Suspect]
     Active Substance: OXYCODONE
     Dosage: 40 MILLIGRAM, ONCE A DAY
     Route: 065
     Dates: start: 2022
  3. OXYCODONE [Suspect]
     Active Substance: OXYCODONE
     Dosage: 15 MILLIGRAM, ONCE A DAY (DAY 3, 10 MG + 5 MG)
     Route: 065
     Dates: start: 2023, end: 2023
  4. OXYCODONE [Suspect]
     Active Substance: OXYCODONE
     Dosage: 10 MILLIGRAM, ONCE A DAY (DAY 4, 5 MG + 5 MG)
     Dates: start: 2023, end: 2023
  5. OXYCODONE [Suspect]
     Active Substance: OXYCODONE
     Dosage: 5 MILLIGRAM, ONCE A DAY (DAY 5 AND DAY 6, 5 MG)
     Dates: start: 2023, end: 2023
  6. OXYCODONE [Suspect]
     Active Substance: OXYCODONE
     Dosage: 20 MILLIGRAM, ONCE A DAY (DAY 1: OXYCODONE 10 MG + 10 MG)
     Dates: start: 202302, end: 2023
  7. OXYCODONE [Suspect]
     Active Substance: OXYCODONE
     Dosage: 20 MILLIGRAM, ONCE A DAY (DAY 2: OXYCODONE 10 MG + 10 MG)
     Dates: start: 2023, end: 2023
  8. CHOLECALCIFEROL [Concomitant]
     Active Substance: CHOLECALCIFEROL
     Indication: Supplementation therapy
     Dosage: 8750 INTERNATIONAL UNIT, ONCE A DAY (DOSAGE AT ADMISSION)
     Route: 065
  9. CHOLECALCIFEROL [Concomitant]
     Active Substance: CHOLECALCIFEROL
     Dosage: UNK (OVER THE YEARS)
     Route: 065

REACTIONS (1)
  - Hyperaesthesia [Recovered/Resolved]

NARRATIVE: CASE EVENT DATE: 20220101
